FAERS Safety Report 14472200 (Version 2)
Quarter: 2018Q2

REPORT INFORMATION
  Report Type: Spontaneous
  Country: US (occurrence: US)
  Receive Date: 20180131
  Receipt Date: 20180423
  Transmission Date: 20180711
  Serious: No
  Sender: FDA-Public Use
  Company Number: US-ASTRAZENECA-2018SE09966

PATIENT
  Age: 701 Month
  Sex: Female
  Weight: 65.8 kg

DRUGS (4)
  1. TUDORZA PRESSAIR [Suspect]
     Active Substance: ACLIDINIUM BROMIDE
     Indication: CHRONIC OBSTRUCTIVE PULMONARY DISEASE
     Route: 055
     Dates: start: 2017
  2. ALBUTEROL. [Concomitant]
     Active Substance: ALBUTEROL
     Indication: RESPIRATORY THERAPY
     Dosage: AS REQUIRED
  3. OXYGEN. [Concomitant]
     Active Substance: OXYGEN
     Dosage: 2.0L/MIN AS REQUIRED
  4. SYMBICORT [Suspect]
     Active Substance: BUDESONIDE\FORMOTEROL FUMARATE DIHYDRATE
     Indication: CHRONIC OBSTRUCTIVE PULMONARY DISEASE
     Dosage: 160/4.5 MCG, TWO INHALATIONS TWICE DAILY
     Route: 055

REACTIONS (13)
  - Pneumonia [Unknown]
  - Stress [Unknown]
  - Malaise [Unknown]
  - Feeling abnormal [Unknown]
  - Hypertension [Unknown]
  - Device malfunction [Unknown]
  - Asthenia [Unknown]
  - Back disorder [Unknown]
  - Chronic obstructive pulmonary disease [Unknown]
  - Dyspnoea [Unknown]
  - Influenza [Unknown]
  - Muscle spasms [Unknown]
  - Diabetes mellitus [Unknown]

NARRATIVE: CASE EVENT DATE: 201712
